FAERS Safety Report 20958401 (Version 3)
Quarter: 2022Q3

REPORT INFORMATION
  Report Type: Report from Study
  Country: US (occurrence: US)
  Receive Date: 20220614
  Receipt Date: 20220812
  Transmission Date: 20221027
  Serious: Yes (Hospitalization)
  Sender: FDA-Public Use
  Company Number: US-NOVARTISPH-NVSC2022US133676

PATIENT
  Age: 65 Year
  Sex: Male
  Weight: 115.6 kg

DRUGS (5)
  1. DIOVAN [Suspect]
     Active Substance: VALSARTAN
     Indication: Hypertension
     Dosage: 100 MG, PRN (12.5/ MG, AS NEEDED)
     Route: 048
     Dates: start: 200712
  2. ATORVASTATIN CALCIUM [Suspect]
     Active Substance: ATORVASTATIN CALCIUM
     Indication: Hypercholesterolaemia
     Dosage: 10 MG, QD
     Route: 048
     Dates: start: 200812
  3. ALLOPURINOL [Suspect]
     Active Substance: ALLOPURINOL
     Indication: Gout
     Dosage: 100 MG, QD
     Route: 048
     Dates: start: 201012
  4. GLYBURIDE [Suspect]
     Active Substance: GLYBURIDE
     Indication: Diabetes mellitus
     Dosage: 5 MG, BID
     Route: 048
     Dates: start: 201212
  5. INDOCIN [Suspect]
     Active Substance: INDOMETHACIN
     Indication: Gout
     Dosage: 100 MG, PRN (AS NEEDED)
     Route: 048
     Dates: start: 201908

REACTIONS (3)
  - Ankle fracture [Recovered/Resolved with Sequelae]
  - Fall [Recovered/Resolved with Sequelae]
  - Tibia fracture [Recovered/Resolved with Sequelae]

NARRATIVE: CASE EVENT DATE: 20210224
